FAERS Safety Report 14605042 (Version 1)
Quarter: 2018Q1

REPORT INFORMATION
  Report Type: Spontaneous
  Country: US (occurrence: US)
  Receive Date: 20180306
  Receipt Date: 20180306
  Transmission Date: 20180509
  Serious: Yes (Death)
  Sender: FDA-Public Use
  Company Number: None

PATIENT
  Age: 61 Year
  Sex: Male

DRUGS (5)
  1. LEVOFLOXACIN. [Concomitant]
     Active Substance: LEVOFLOXACIN
  2. MUPIROCIN. [Concomitant]
     Active Substance: MUPIROCIN
  3. FENTANYL. [Concomitant]
     Active Substance: FENTANYL
  4. OXYVCODONE [Concomitant]
  5. LONSURF [Suspect]
     Active Substance: TIPIRACIL HYDROCHLORIDE\TRIFLURIDINE
     Indication: NEOPLASM MALIGNANT
     Dosage: 20-8.19MG X3 QD DAYS 1-5AND8-12 ORAL
     Route: 048
     Dates: start: 20171209

REACTIONS (1)
  - Death [None]

NARRATIVE: CASE EVENT DATE: 20180226
